FAERS Safety Report 7242872-1 (Version None)
Quarter: 2011Q1

REPORT INFORMATION
  Report Type: 
  Country: None (occurrence: None)
  Receive Date: 20110114
  Receipt Date: 20110105
  Transmission Date: 20110831
  Serious: Yes (Life-Threatening)
  Sender: FDA-Public Use
  Company Number: TIF2011A00008

PATIENT
  Age: 76 Year
  Sex: Male

DRUGS (4)
  1. ASPIRIN [Concomitant]
  2. TRIATEC (RAMIPRIL) [Concomitant]
  3. LOPRESOR(METOPROLOL TARTRATE0 [Concomitant]
  4. ACTOS [Suspect]
     Dosage: 30 MG (30 MG, 1 IN 1 D), ORAL
     Route: 048
     Dates: start: 20101105, end: 20110104

REACTIONS (1)
  - ANGINA PECTORIS [None]
